FAERS Safety Report 25377779 (Version 1)
Quarter: 2025Q2

REPORT INFORMATION
  Report Type: Spontaneous
  Country: US (occurrence: US)
  Receive Date: 20250530
  Receipt Date: 20250530
  Transmission Date: 20250716
  Serious: No
  Sender: ABBVIE
  Company Number: US-ABBVIE-6304134

PATIENT

DRUGS (1)
  1. RINVOQ [Suspect]
     Active Substance: UPADACITINIB
     Indication: Product used for unknown indication
     Route: 048
     Dates: start: 202404

REACTIONS (7)
  - Mast cell activation syndrome [Unknown]
  - Drug hypersensitivity [Unknown]
  - Skin erosion [Unknown]
  - Skin exfoliation [Unknown]
  - Pruritus [Unknown]
  - Pain of skin [Unknown]
  - Food allergy [Unknown]

NARRATIVE: CASE EVENT DATE: 20240401
